FAERS Safety Report 19506856 (Version 1)
Quarter: 2021Q3

REPORT INFORMATION
  Report Type: Spontaneous
  Country: US (occurrence: US)
  Receive Date: 20210708
  Receipt Date: 20210708
  Transmission Date: 20211014
  Serious: Yes (Other)
  Sender: FDA-Public Use
  Company Number: None

PATIENT
  Age: 30 Year
  Sex: Female
  Weight: 80.1 kg

DRUGS (1)
  1. MONISTAT 1 COMBINATION PACK [Suspect]
     Active Substance: MICONAZOLE NITRATE
     Indication: FUNGAL INFECTION
     Dosage: ?          QUANTITY:1 SUPPOSITORY(IES);?
     Route: 067
     Dates: start: 20210706, end: 20210706

REACTIONS (5)
  - Chemical burn of genitalia [None]
  - Application site inflammation [None]
  - Application site burn [None]
  - Urinary retention [None]
  - Vulvovaginal burning sensation [None]

NARRATIVE: CASE EVENT DATE: 20210706
